FAERS Safety Report 12967421 (Version 3)
Quarter: 2018Q1

REPORT INFORMATION
  Report Type: Spontaneous
  Country: FI (occurrence: FI)
  Receive Date: 20161123
  Receipt Date: 20180323
  Transmission Date: 20180508
  Serious: Yes (Hospitalization, Other)
  Sender: FDA-Public Use
  Company Number: FI-ROCHE-1850643

PATIENT
  Age: 79 Year
  Sex: Female

DRUGS (7)
  1. GAZYVARO [Suspect]
     Active Substance: OBINUTUZUMAB
     Indication: CHRONIC LYMPHOCYTIC LEUKAEMIA
     Dosage: 6 CYCLES WITH CHLORAMBUCIL?THERAPY DATES: 06/JUN/2016, 13/JUN/2016, 20/JUN/2016, 04/JUL/2016, 01/AUG
     Route: 065
     Dates: start: 20160606, end: 20161024
  2. SOLU-MEDROL [Concomitant]
     Active Substance: METHYLPREDNISOLONE SODIUM SUCCINATE
     Indication: PREMEDICATION
     Route: 042
     Dates: start: 20160606, end: 20160607
  3. PARACETAMOL [Concomitant]
     Active Substance: ACETAMINOPHEN
     Indication: PREMEDICATION
     Route: 048
     Dates: start: 20160606, end: 20161024
  4. CHLORAMBUCIL [Concomitant]
     Active Substance: CHLORAMBUCIL
     Dosage: 6 CYCLES WITH OBINUTUZUMAB
     Route: 065
     Dates: start: 20160606, end: 201611
  5. CETIRIZIN [Concomitant]
     Active Substance: CETIRIZINE HYDROCHLORIDE
     Indication: PREMEDICATION
     Route: 048
     Dates: start: 20160606, end: 20161024
  6. RITUXIMAB. [Suspect]
     Active Substance: RITUXIMAB
     Indication: CHRONIC LYMPHOCYTIC LEUKAEMIA
     Dosage: 6 CYCLES WITH CHLORAMBUCIL?THERAPY DATES: 26/JAN/2015, 25/FEB/2015, 25/MAR/2015,22/APR/2015, 20/MAY/
     Route: 065
     Dates: start: 20150126, end: 20150617
  7. CHLORAMBUCIL [Concomitant]
     Active Substance: CHLORAMBUCIL
     Indication: CHRONIC LYMPHOCYTIC LEUKAEMIA
     Dosage: 6 CYCLES WITH RITUXIMAB
     Route: 065
     Dates: start: 20150126, end: 20150617

REACTIONS (6)
  - Dyspnoea [Recovered/Resolved]
  - Sleep apnoea syndrome [Unknown]
  - Fatigue [Not Recovered/Not Resolved]
  - Aortic valve stenosis [Unknown]
  - Neutropenia [Recovered/Resolved]
  - Aortic valve incompetence [Unknown]

NARRATIVE: CASE EVENT DATE: 201504
